FAERS Safety Report 7328674-6 (Version None)
Quarter: 2011Q1

REPORT INFORMATION
  Report Type: 
  Country: None (occurrence: None)
  Receive Date: 20110303
  Receipt Date: 20110221
  Transmission Date: 20110831
  Serious: Yes (Hospitalization)
  Sender: FDA-Public Use
  Company Number: US-JNJFOC-20110207316

PATIENT
  Sex: Female
  Weight: 56.65 kg

DRUGS (4)
  1. ANTIBIOTICS [Concomitant]
     Indication: INFLAMMATORY BOWEL DISEASE
  2. REMICADE [Suspect]
     Indication: INFLAMMATORY BOWEL DISEASE
     Route: 042
  3. VENTOLIN [Concomitant]
  4. HUMIRA [Concomitant]

REACTIONS (1)
  - SMALL INTESTINAL OBSTRUCTION [None]
